FAERS Safety Report 9499402 (Version 1)
Quarter: 2013Q1

REPORT INFORMATION
  Report Type: Spontaneous
  Country: US (occurrence: None)
  Receive Date: 20130107
  Receipt Date: 20130107
  Transmission Date: 20140127
  Serious: Yes (Other)
  Sender: FDA-Public Use
  Company Number: PHEH2012US019291

PATIENT
  Sex: Female

DRUGS (1)
  1. GILENYA (FTY) CAPSULE [Suspect]
     Indication: MULTIPLE SCLEROSIS
     Route: 048

REACTIONS (4)
  - Progressive multiple sclerosis [None]
  - Drug ineffective [None]
  - Central nervous system lesion [None]
  - Expanded disability status scale score increased [None]
